FAERS Safety Report 7437014-3 (Version None)
Quarter: 2011Q2

REPORT INFORMATION
  Report Type: 
  Country: None (occurrence: None)
  Receive Date: 20110426
  Receipt Date: 20110418
  Transmission Date: 20111010
  Serious: Yes (Other)
  Sender: FDA-Public Use
  Company Number: AT-MPIJNJ-2011-01657

PATIENT

DRUGS (4)
  1. THALIDOMIDE [Concomitant]
     Indication: MULTIPLE MYELOMA
  2. VELCADE [Suspect]
     Indication: MULTIPLE MYELOMA
  3. DEXAMETHASONE [Concomitant]
     Indication: MULTIPLE MYELOMA
  4. LENALIDOMIDE [Concomitant]
     Indication: MULTIPLE MYELOMA

REACTIONS (2)
  - BLOOD PRESSURE FLUCTUATION [None]
  - PAIN [None]
